FAERS Safety Report 10356840 (Version 1)
Quarter: 2014Q3

REPORT INFORMATION
  Report Type: Report from Study
  Country: MX (occurrence: MX)
  Receive Date: 20140801
  Receipt Date: 20140801
  Transmission Date: 20150326
  Serious: Yes (Other)
  Sender: FDA-Public Use
  Company Number: PHHY2014MX094011

PATIENT
  Age: 15 Year
  Sex: Male

DRUGS (3)
  1. TRILEPTAL [Suspect]
     Active Substance: OXCARBAZEPINE
     Dosage: TWO TABLETS OF 300MG DAILY
     Route: 048
     Dates: start: 20120723
  2. TRILEPTAL [Suspect]
     Active Substance: OXCARBAZEPINE
     Dosage: TRILEPTAL 600MG
  3. TRILEPTAL [Suspect]
     Active Substance: OXCARBAZEPINE
     Dosage: TWO TABLETS OF 300MG DAILY
     Route: 048

REACTIONS (3)
  - Convulsion [Recovered/Resolved]
  - Daydreaming [Recovered/Resolved]
  - Malaise [Recovered/Resolved]

NARRATIVE: CASE EVENT DATE: 20140723
